FAERS Safety Report 16636287 (Version 1)
Quarter: 2019Q3

REPORT INFORMATION
  Report Type: Spontaneous
  Country: HU (occurrence: HU)
  Receive Date: 20190726
  Receipt Date: 20190726
  Transmission Date: 20191004
  Serious: Yes (Other)
  Sender: FDA-Public Use
  Company Number: HU-MYLANLABS-2019M1068755

PATIENT
  Age: 52 Year
  Sex: Male

DRUGS (6)
  1. FUROSEMIDE. [Suspect]
     Active Substance: FUROSEMIDE
     Indication: PRODUCT USED FOR UNKNOWN INDICATION
     Dosage: 2X40 MG, QW
     Route: 065
  2. FENOFIBRATE. [Suspect]
     Active Substance: FENOFIBRATE
     Indication: PRODUCT USED FOR UNKNOWN INDICATION
     Dosage: 1X267 MG, UNK
     Route: 065
  3. CLOPAMIDE [Suspect]
     Active Substance: CLOPAMIDE
     Indication: PRODUCT USED FOR UNKNOWN INDICATION
     Dosage: 5 MG, QD
     Route: 065
  4. CARVEDILOL. [Suspect]
     Active Substance: CARVEDILOL
     Indication: PRODUCT USED FOR UNKNOWN INDICATION
     Dosage: 12.5 MG, BID
     Route: 065
  5. ETACRYNIC ACID [Suspect]
     Active Substance: ETHACRYNIC ACID
     Indication: PRODUCT USED FOR UNKNOWN INDICATION
     Dosage: 1X25 MG, UNK
     Route: 065
  6. GLYCERYL TRINITRATE [Suspect]
     Active Substance: NITROGLYCERIN
     Indication: PRODUCT USED FOR UNKNOWN INDICATION
     Dosage: 2.6 MG, BID
     Route: 065

REACTIONS (11)
  - Glucose tolerance impaired [Unknown]
  - Oedema [Recovered/Resolved]
  - Condition aggravated [Unknown]
  - Dyspnoea [Recovered/Resolved]
  - Migraine [Recovering/Resolving]
  - Hypertension [Recovered/Resolved]
  - Blood glucose increased [Unknown]
  - Dyslipidaemia [Unknown]
  - Headache [Recovering/Resolving]
  - Myocardial ischaemia [Unknown]
  - Chronic obstructive pulmonary disease [Unknown]
